FAERS Safety Report 8018631-9 (Version None)
Quarter: 2012Q1

REPORT INFORMATION
  Report Type: 
  Country: None (occurrence: None)
  Receive Date: 20120103
  Receipt Date: 20111229
  Transmission Date: 20120608
  Serious: Yes (Death, Life-Threatening)
  Sender: FDA-Public Use
  Company Number: FR-PFIZER INC-2011301779

PATIENT
  Age: 62 Year
  Sex: Female

DRUGS (21)
  1. LEVOFLOXACIN [Suspect]
     Indication: LUNG DISORDER
     Dosage: 1 G, 1X/DAY
     Route: 048
     Dates: start: 20110207, end: 20110215
  2. CEFTRIAXONE [Suspect]
     Indication: LUNG DISORDER
     Dosage: 1 G, 1X/DAY
     Route: 042
     Dates: start: 20110209, end: 20110212
  3. VALACYCLOVIR HYDROCHLORIDE [Suspect]
     Dosage: 1 G, 1X/DAY
     Route: 048
     Dates: start: 20110201, end: 20110204
  4. FLUCONAZOLE [Concomitant]
     Dosage: 200 MG, 1X/DAY
     Route: 048
     Dates: start: 20110201, end: 20110204
  5. AMLODIPINE BESYLATE [Suspect]
     Dosage: 5 MG, 2X/DAY
     Route: 048
     Dates: start: 20110205, end: 20110214
  6. AUGMENTIN '125' [Suspect]
     Dosage: 1 G, 3X/DAY
     Route: 048
     Dates: start: 20110129, end: 20110204
  7. PIPERACILLIN AND TAZOBACTAM [Concomitant]
     Dosage: UNK
     Dates: start: 20110304
  8. BISOPROLOL FUMARATE [Concomitant]
     Dosage: UNK
     Dates: start: 20110205
  9. LASIX [Concomitant]
     Dosage: UNK
     Dates: start: 20110131
  10. FLUCONAZOLE [Concomitant]
     Dosage: 200 MG, 1X/DAY
     Route: 048
     Dates: start: 20110106, end: 20110117
  11. PIPERACILLIN AND TAZOBACTAM [Concomitant]
     Dosage: UNK
     Dates: start: 20110112, end: 20110124
  12. VANCOMYCIN [Concomitant]
     Dosage: UNK
     Dates: start: 20110124, end: 20110128
  13. VANCOMYCIN [Concomitant]
     Dosage: UNK
     Dates: start: 20110219, end: 20110220
  14. FLAGYL [Concomitant]
     Dosage: UNK
     Dates: start: 20110118, end: 20110201
  15. ALDACTONE [Suspect]
     Dosage: 50 MG, 1X/DAY
     Route: 048
     Dates: start: 20110205, end: 20110216
  16. VALACYCLOVIR HYDROCHLORIDE [Suspect]
     Dosage: 1 G, 1X/DAY
     Route: 048
     Dates: start: 20110106, end: 20110117
  17. VALACYCLOVIR HYDROCHLORIDE [Suspect]
     Dosage: 1 G, 1X/DAY
     Route: 048
     Dates: start: 20110208, end: 20110217
  18. AUGMENTIN '125' [Suspect]
     Dosage: 1 G, 3X/DAY
     Route: 042
     Dates: start: 20110208, end: 20110209
  19. PERINDOPRIL ERBUMINE [Suspect]
     Dosage: 10 MG, 2X/DAY
     Route: 048
     Dates: start: 20110205, end: 20110217
  20. FLUCONAZOLE [Concomitant]
     Dosage: 200 MG, 1X/DAY
     Route: 042
     Dates: start: 20110118, end: 20110129
  21. FLAGYL [Concomitant]
     Dosage: UNK
     Dates: start: 20110216, end: 20110217

REACTIONS (4)
  - HEPATITIS CHOLESTATIC [None]
  - DRUG RASH WITH EOSINOPHILIA AND SYSTEMIC SYMPTOMS [None]
  - ACUTE GRAFT VERSUS HOST DISEASE [None]
  - RENAL FAILURE [None]
